FAERS Safety Report 9723055 (Version 1)
Quarter: 2013Q4

REPORT INFORMATION
  Report Type: Spontaneous
  Country: US (occurrence: None)
  Receive Date: 20131127
  Receipt Date: 20131127
  Transmission Date: 20140711
  Serious: Yes (Other)
  Sender: FDA-Public Use
  Company Number: None

PATIENT
  Age: 69 Year
  Sex: Male
  Weight: 113.4 kg

DRUGS (1)
  1. NAFTIN [Suspect]
     Indication: SKIN IRRITATION
     Dosage: TWICE A DAY, APPLIED TO A SURFACE, USUALLY THE SKIN
     Dates: start: 20130820, end: 20130825

REACTIONS (3)
  - Skin irritation [None]
  - Condition aggravated [None]
  - Skin burning sensation [None]
